FAERS Safety Report 12476722 (Version 5)
Quarter: 2017Q1

REPORT INFORMATION
  Report Type: Report from Study
  Country: US (occurrence: US)
  Receive Date: 20160617
  Receipt Date: 20170221
  Transmission Date: 20170428
  Serious: Yes (Hospitalization, Other)
  Sender: FDA-Public Use
  Company Number: US-AMGEN-USASL2016076147

PATIENT
  Age: 76 Year
  Sex: Female

DRUGS (3)
  1. ENBREL [Suspect]
     Active Substance: ETANERCEPT
     Dosage: 50 MG, QWK
     Route: 065
  2. ENBREL [Suspect]
     Active Substance: ETANERCEPT
     Indication: RHEUMATOID ARTHRITIS
     Dosage: 50 MG, QWK
     Route: 065
     Dates: start: 201510
  3. ENBREL [Suspect]
     Active Substance: ETANERCEPT
     Dosage: 50 MG, QWK
     Route: 065
     Dates: start: 20161128

REACTIONS (15)
  - Fall [Unknown]
  - Upper limb fracture [Unknown]
  - Impaired healing [Unknown]
  - Tendon rupture [Not Recovered/Not Resolved]
  - Malaise [Unknown]
  - Asthenia [Not Recovered/Not Resolved]
  - Joint effusion [Unknown]
  - Scratch [Not Recovered/Not Resolved]
  - Cerebrovascular accident [Unknown]
  - Arthralgia [Unknown]
  - Balance disorder [Not Recovered/Not Resolved]
  - Infection [Unknown]
  - Arthritis infective [Not Recovered/Not Resolved]
  - Arthropod bite [Unknown]
  - Bone deformity [Not Recovered/Not Resolved]

NARRATIVE: CASE EVENT DATE: 2016
